FAERS Safety Report 6903707-7 (Version None)
Quarter: 2010Q3

REPORT INFORMATION
  Report Type: 
  Country: None (occurrence: None)
  Receive Date: 20100803
  Receipt Date: 20081114
  Transmission Date: 20110219
  Serious: No
  Sender: FDA-Public Use
  Company Number: US-PFIZER INC-2008097414

PATIENT
  Sex: Female
  Weight: 97.7 kg

DRUGS (5)
  1. LYRICA [Suspect]
     Indication: NEUROPATHY PERIPHERAL
     Dates: start: 20080701
  2. CALAN - SLOW RELEASE [Concomitant]
  3. XANAX [Concomitant]
  4. CHOLESTYRAMINE [Concomitant]
  5. ULTRAM [Concomitant]

REACTIONS (1)
  - ASTHENIA [None]
